FAERS Safety Report 4911979-3 (Version None)
Quarter: 2006Q1

REPORT INFORMATION
  Report Type: 
  Country: None (occurrence: None)
  Receive Date: 20060215
  Receipt Date: 20060207
  Transmission Date: 20060701
  Serious: Yes (Death, Other)
  Sender: FDA-Public Use
  Company Number: PHBS2006DE02036

PATIENT
  Age: 65 Year
  Sex: Male

DRUGS (10)
  1. PREDNISOLONE [Suspect]
     Indication: STEM CELL TRANSPLANT
     Dosage: 20 MG/D
  2. TACROLIMUS [Suspect]
     Indication: STEM CELL TRANSPLANT
  3. FLUCONAZOLE [Concomitant]
     Route: 048
  4. AMPHOTERICIN B [Concomitant]
     Route: 048
  5. VORICONAZOLE [Concomitant]
     Route: 048
  6. ALEMTUZUMAB [Suspect]
     Indication: STEM CELL TRANSPLANT
     Dosage: 20 MG/D
     Route: 042
  7. CYCLOPHOSPHAMIDE [Suspect]
     Indication: STEM CELL TRANSPLANT
  8. IRRADIATION [Concomitant]
     Indication: STEM CELL TRANSPLANT
  9. CYCLOSPORINE [Suspect]
     Indication: STEM CELL TRANSPLANT
     Dosage: 3 MG/KG/D
  10. NEUPOGEN [Concomitant]

REACTIONS (22)
  - ACUTE RESPIRATORY FAILURE [None]
  - C-REACTIVE PROTEIN INCREASED [None]
  - CANDIDA SEROLOGY POSITIVE [None]
  - CANDIDIASIS [None]
  - CRYPTOGENIC ORGANIZING PNEUMONIA [None]
  - DYSPNOEA [None]
  - ENTEROCOCCAL INFECTION [None]
  - FEBRILE NEUTROPENIA [None]
  - FUNGAL INFECTION [None]
  - FUNGUS SEROLOGY TEST POSITIVE [None]
  - GRAFT VERSUS HOST DISEASE [None]
  - HEPATOTOXICITY [None]
  - INTUBATION [None]
  - LIFE SUPPORT [None]
  - LIVER DISORDER [None]
  - LUNG INFILTRATION [None]
  - PSYCHOTIC DISORDER DUE TO A GENERAL MEDICAL CONDITION [None]
  - PYREXIA [None]
  - RENAL FAILURE [None]
  - STAPHYLOCOCCAL INFECTION [None]
  - TACHYARRHYTHMIA [None]
  - TRACHEOSTOMY [None]
